FAERS Safety Report 16062556 (Version 4)
Quarter: 2019Q2

REPORT INFORMATION
  Report Type: Spontaneous
  Country: US (occurrence: US)
  Receive Date: 20190312
  Receipt Date: 20190507
  Transmission Date: 20190711
  Serious: No
  Sender: FDA-Public Use
  Company Number: US-SA-2019SA066297

PATIENT
  Age: 55 Year
  Sex: Female

DRUGS (1)
  1. SOLIQUA 100/33 [Suspect]
     Active Substance: INSULIN GLARGINE\LIXISENATIDE
     Indication: DIABETES MELLITUS
     Dosage: 48 U, QD
     Route: 065
     Dates: start: 2017

REACTIONS (3)
  - Product dose omission [Unknown]
  - Device operational issue [Unknown]
  - Product contamination with body fluid [Unknown]
